FAERS Safety Report 7230309-8 (Version None)
Quarter: 2011Q1

REPORT INFORMATION
  Report Type: 
  Country: None (occurrence: None)
  Receive Date: 20110118
  Receipt Date: 20110113
  Transmission Date: 20110831
  Serious: Yes (Hospitalization, Other)
  Sender: FDA-Public Use
  Company Number: US-ASTRAZENECA-2007UW17826

PATIENT
  Age: 22763 Day
  Sex: Male
  Weight: 72.6 kg

DRUGS (13)
  1. LIPITOR [Concomitant]
     Dosage: 10 MG/ SUPPER
     Dates: start: 20000825
  2. SEROQUEL [Suspect]
     Dosage: 100 MG DAILY, 100 MG 1.5 TABLET AT NIGHT
     Route: 048
     Dates: start: 19991111
  3. SEROQUEL [Suspect]
     Indication: DEPRESSION
     Route: 048
     Dates: start: 19991111
  4. SEROQUEL [Suspect]
     Dosage: 100 MG DAILY, 100 MG 1.5 TABLET AT NIGHT
     Route: 048
     Dates: start: 19991111
  5. PAXIL [Concomitant]
     Route: 048
     Dates: start: 20000502
  6. EFFEXOR XR [Concomitant]
     Dates: start: 19990520
  7. AMARYL [Concomitant]
     Dosage: 4 MG DAILY, 4 MG 2 TABLET/ AM
     Dates: start: 20000509
  8. LOTENSIN [Concomitant]
     Dates: start: 20000502
  9. ZOCOR [Concomitant]
     Dates: start: 20010209
  10. SEROQUEL [Suspect]
     Indication: ANXIETY
     Route: 048
     Dates: start: 19991111
  11. DEPAKOTE [Concomitant]
     Dosage: 500 - 1000 MG
     Dates: start: 19990520
  12. AVANDIA [Concomitant]
     Dates: start: 20000509
  13. WARFARIN SODIUM [Concomitant]
     Dosage: 3 - 5 MG
     Dates: start: 19990510

REACTIONS (2)
  - DIABETIC NEUROPATHY [None]
  - TYPE 2 DIABETES MELLITUS [None]
